FAERS Safety Report 10245399 (Version 1)
Quarter: 2014Q2

REPORT INFORMATION
  Report Type: Report from Study
  Country: BR (occurrence: BR)
  Receive Date: 20140618
  Receipt Date: 20140618
  Transmission Date: 20141212
  Serious: Yes (Other)
  Sender: FDA-Public Use
  Company Number: PHHY2014BR075570

PATIENT
  Sex: Female
  Weight: 70 kg

DRUGS (16)
  1. EXELON PATCH [Suspect]
     Indication: DEMENTIA ALZHEIMER^S TYPE
     Dosage: 5CM
     Route: 062
  2. EXELON PATCH [Suspect]
     Dosage: ONE ADHESIVE DAILY (10CM)
     Route: 062
     Dates: start: 201403
  3. EXELON PATCH [Suspect]
     Dosage: ONE ADHESIVE DAILY (5CM)
     Route: 062
  4. BENICAR [Concomitant]
     Indication: BLOOD PRESSURE ABNORMAL
     Dosage: ONE TABLET DAILY
  5. AMLODIPINE BESILATE [Concomitant]
     Indication: HYPERTENSION
     Dosage: ONE TABLET DAILY
  6. LIPITOR [Concomitant]
     Indication: BLOOD CHOLESTEROL ABNORMAL
     Dosage: ONE TABLET DAILY
  7. VASOGARD [Concomitant]
     Indication: COAGULOPATHY
     Dosage: TWO TABLETS DAILY
  8. SOMALGIN [Concomitant]
     Indication: COAGULOPATHY
     Dosage: ONE TABLET DAILY
  9. PROCIMAX [Concomitant]
     Indication: DEPRESSION
     Dosage: HALF TABLET DAILY
  10. MULTI-VIT [Concomitant]
     Indication: EYE DEGENERATIVE DISORDER
     Dosage: ONE TABLET DAILY
  11. DICETEL [Concomitant]
     Indication: DIVERTICULITIS
     Dosage: ONE TABLET DAILY
  12. SLOW K [Concomitant]
     Indication: HYPOKALAEMIA
     Dosage: ONE TABLET DAILY
  13. BROMAZEPAM [Concomitant]
     Indication: SLEEP DISORDER
     Dosage: A QUARTER OF TABLET DAILY
  14. NEXUM [Concomitant]
     Indication: GASTRIC DISORDER
     Dosage: ONE TABLET DAILY
  15. CALCIUM [Concomitant]
     Indication: CALCIUM DEFICIENCY
     Dosage: TWO TABLETS DAILY
  16. OMEGA 3 [Concomitant]
     Indication: BLOOD CHOLESTEROL ABNORMAL
     Dosage: THREE TABLETS DAILY

REACTIONS (9)
  - Arthritis [Recovering/Resolving]
  - Osteoarthritis [Recovering/Resolving]
  - Daydreaming [Recovering/Resolving]
  - Nausea [Recovering/Resolving]
  - Vomiting [Recovering/Resolving]
  - Dizziness [Recovering/Resolving]
  - Decreased appetite [Not Recovered/Not Resolved]
  - Drug intolerance [Recovering/Resolving]
  - Inappropriate schedule of drug administration [Unknown]
